FAERS Safety Report 9213780 (Version 2)
Quarter: 2014Q1

REPORT INFORMATION
  Report Type: Spontaneous
  Country: US (occurrence: US)
  Receive Date: 20130405
  Receipt Date: 20140106
  Transmission Date: 20141002
  Serious: Yes (Other)
  Sender: FDA-Public Use
  Company Number: US-BAYER-2013-040343

PATIENT
  Age: 29 Year
  Sex: Female

DRUGS (7)
  1. HYDROCODONE/ACETAMINOPHEN [Concomitant]
     Dosage: 5/500
     Route: 048
     Dates: start: 20120430
  2. VICODIN [Concomitant]
     Dosage: 5-500, UNK
  3. IBUPROFEN [Concomitant]
     Dosage: UNK
  4. YAZ [Suspect]
     Indication: ACNE
     Dosage: UNK
     Route: 048
  5. METRONIDAZOLE [Concomitant]
     Dosage: 500 MG, UNK
     Route: 048
     Dates: start: 20120430
  6. CIPROFLOXACIN [Concomitant]
     Dosage: 500 MG, UNK
     Route: 048
     Dates: start: 20120430
  7. ONDANSETRON [Concomitant]
     Dosage: 4 MG, UNK
     Route: 048
     Dates: start: 20120430

REACTIONS (5)
  - Cholecystitis [None]
  - Cholecystitis chronic [None]
  - Injury [None]
  - Pain [None]
  - Pain [None]
